FAERS Safety Report 12784204 (Version 1)
Quarter: 2016Q3

REPORT INFORMATION
  Report Type: Report from Study
  Country: DE (occurrence: DE)
  Receive Date: 20160927
  Receipt Date: 20160927
  Transmission Date: 20161109
  Serious: Yes (Other)
  Sender: FDA-Public Use
  Company Number: DE-INCYTE CORPORATION-2012IN002776

PATIENT
  Age: 71 Year
  Sex: Male
  Weight: 77 kg

DRUGS (44)
  1. INCB018424 [Suspect]
     Active Substance: RUXOLITINIB
     Dosage: 30 MG/DAY/TWICE
     Route: 048
     Dates: start: 20130313, end: 20130327
  2. INCB018424 [Suspect]
     Active Substance: RUXOLITINIB
     Dosage: UNK UNK, QD
     Route: 048
     Dates: start: 20140214, end: 20140307
  3. PANTOZOL [Concomitant]
     Active Substance: PANTOPRAZOLE SODIUM
     Indication: PRODUCT USED FOR UNKNOWN INDICATION
     Dosage: 80 MG, DAILY
     Dates: start: 201001
  4. PANTOZOL [Concomitant]
     Active Substance: PANTOPRAZOLE SODIUM
     Dosage: 80 MG, QD
     Route: 065
     Dates: start: 201001, end: 20131012
  5. MIRTAZAPINE. [Concomitant]
     Active Substance: MIRTAZAPINE
     Indication: RESTLESSNESS
     Dosage: 15 MG, PRN (AS NEEDED)
     Route: 065
     Dates: start: 200502, end: 20150212
  6. NACL [Concomitant]
     Active Substance: SODIUM CHLORIDE
     Indication: PRODUCT USED FOR UNKNOWN INDICATION
     Dosage: 2000 ML, UNK
     Route: 065
     Dates: start: 20131009, end: 20131010
  7. INCB018424 [Suspect]
     Active Substance: RUXOLITINIB
     Dosage: 5 MG/DAY/TWICE
     Route: 048
     Dates: start: 20150128
  8. LORAZEPAM. [Concomitant]
     Active Substance: LORAZEPAM
     Indication: RESTLESSNESS
     Dosage: 2 MG, QD
     Route: 065
     Dates: start: 200502
  9. INCB018424 [Suspect]
     Active Substance: RUXOLITINIB
     Dosage: UNK UNK, QD
     Route: 048
     Dates: start: 20140308, end: 20140404
  10. INCB018424 [Suspect]
     Active Substance: RUXOLITINIB
     Dosage: 5 MG, QD
     Route: 048
     Dates: start: 20140424, end: 20141126
  11. HYDROCHLOROTHIAZIDE. [Suspect]
     Active Substance: HYDROCHLOROTHIAZIDE
     Dosage: 12.5 MG, UNK
     Route: 065
     Dates: start: 20131012
  12. PANTOZOL [Concomitant]
     Active Substance: PANTOPRAZOLE SODIUM
     Dosage: 40 MG, QD
     Route: 065
     Dates: start: 20131013
  13. ALLOPURINOL. [Concomitant]
     Active Substance: ALLOPURINOL
     Indication: ARTHRITIS
     Dosage: 150 MG, QD
     Route: 065
     Dates: start: 199301
  14. TORASEMIDE [Concomitant]
     Active Substance: TORSEMIDE
     Indication: HYPERTENSION
     Dosage: 10 MG, QD
     Route: 065
     Dates: start: 200901
  15. TORASEMIDE [Concomitant]
     Active Substance: TORSEMIDE
     Dosage: 10 MG, QD
     Route: 065
     Dates: start: 200901, end: 20130509
  16. METOPROLOL. [Concomitant]
     Active Substance: METOPROLOL
     Dosage: 47.5 MG, QD
     Route: 065
     Dates: start: 201001, end: 20150211
  17. METOPROLOL. [Concomitant]
     Active Substance: METOPROLOL
     Dosage: 142.5 MG, UNK
     Route: 065
     Dates: start: 20150212
  18. NEORECORMON [Concomitant]
     Active Substance: ERYTHROPOIETIN
     Indication: ANAEMIA
     Dosage: UNK
     Dates: start: 20100503, end: 20121002
  19. INCB018424 [Suspect]
     Active Substance: RUXOLITINIB
     Dosage: 20 MG, QD
     Route: 048
     Dates: start: 20121113, end: 20121206
  20. INCB018424 [Suspect]
     Active Substance: RUXOLITINIB
     Dosage: UNK UNK, QD
     Route: 048
     Dates: start: 20140405, end: 20140423
  21. METOPROLOL. [Concomitant]
     Active Substance: METOPROLOL
     Indication: HYPERTENSION
     Dosage: 47.5 MG, DAILY
     Dates: start: 201001, end: 20150211
  22. NEORECORMON [Concomitant]
     Active Substance: ERYTHROPOIETIN
     Dosage: 30000 IU, QW
     Route: 065
     Dates: start: 20121023
  23. GLUCOSE [Concomitant]
     Active Substance: DEXTROSE
     Indication: PRODUCT USED FOR UNKNOWN INDICATION
     Dosage: 500 ML, UNK
     Route: 065
     Dates: start: 20131009, end: 20131010
  24. MAGNESIOCARD [Concomitant]
     Active Substance: MAGNESIUM ASPARTATE HYDROCHLORIDE
     Indication: PROPHYLAXIS
     Dosage: 2.5 MMOL, QD
     Route: 065
     Dates: start: 20130703
  25. CLOBEGALEN [Concomitant]
     Dosage: UNK UNK, QD (1 TO 2 TIMES PER DAY)
     Route: 065
     Dates: start: 20150903
  26. INCB018424 [Suspect]
     Active Substance: RUXOLITINIB
     Indication: MYELOFIBROSIS
     Dosage: 30 MG/DAY/TWICE
     Route: 048
     Dates: start: 20121004, end: 20121022
  27. RAMIPRIL. [Concomitant]
     Active Substance: RAMIPRIL
     Indication: PRODUCT USED FOR UNKNOWN INDICATION
     Dosage: 7.5 MG, QD
     Route: 065
     Dates: start: 200901
  28. TORASEMIDE [Concomitant]
     Active Substance: TORSEMIDE
     Dosage: 5 MG, UNK
     Route: 065
     Dates: start: 20130510, end: 20131008
  29. INCB018424 [Suspect]
     Active Substance: RUXOLITINIB
     Dosage: 10 MG/DAY/TWICE
     Route: 048
     Dates: start: 20121023, end: 20121113
  30. INCB018424 [Suspect]
     Active Substance: RUXOLITINIB
     Dosage: 10 MG/DAY/TWICE
     Route: 048
     Dates: start: 20130328, end: 20131009
  31. INCB018424 [Suspect]
     Active Substance: RUXOLITINIB
     Dosage: 10 MG/DAY/TWICE
     Route: 048
     Dates: start: 20131013, end: 20140214
  32. TORASEMIDE [Concomitant]
     Active Substance: TORSEMIDE
     Dosage: 10 MG, UNK
     Route: 065
     Dates: start: 20131009
  33. NEORECORMON [Concomitant]
     Active Substance: ERYTHROPOIETIN
     Dosage: 30000 IU, QW
     Route: 065
     Dates: start: 20100503, end: 20121002
  34. MAGNESIOCARD [Concomitant]
     Active Substance: MAGNESIUM ASPARTATE HYDROCHLORIDE
     Indication: MUSCLE SPASMS
  35. IMODIUM [Concomitant]
     Active Substance: LOPERAMIDE HYDROCHLORIDE
     Indication: DIARRHOEA
     Dosage: 2 MG, QID (AS NEEDED)
     Route: 065
     Dates: start: 20141009
  36. DERMATOP [Concomitant]
     Active Substance: PREDNICARBATE
     Indication: DERMATOSIS
     Dosage: UNK UNK, QD (1 TO 2 TIMES PER DAY)
     Route: 065
     Dates: start: 20151014
  37. REVATIO [Concomitant]
     Active Substance: SILDENAFIL CITRATE
     Indication: HYPERTENSION
     Dosage: 80 MG, QD
     Route: 065
     Dates: start: 200901
  38. REVATIO [Concomitant]
     Active Substance: SILDENAFIL CITRATE
     Dosage: 80 MG, QD
     Route: 065
     Dates: start: 201403
  39. CLOBEGALEN [Concomitant]
     Indication: RASH
     Dosage: UNK UNK, QD (1 TO 2 TIMES PER DAY)
     Route: 065
     Dates: start: 20150903
  40. INCB018424 [Suspect]
     Active Substance: RUXOLITINIB
     Dosage: 10 MG/DAY/TWICE
     Route: 048
     Dates: start: 20121207, end: 20130313
  41. HYDROCHLOROTHIAZIDE. [Suspect]
     Active Substance: HYDROCHLOROTHIAZIDE
     Indication: PRODUCT USED FOR UNKNOWN INDICATION
     Dosage: 25 MG, QD
     Route: 065
     Dates: start: 201106, end: 201301
  42. FOLIC ACID. [Concomitant]
     Active Substance: FOLIC ACID
     Indication: ANAEMIA
     Dosage: 5 MG, QD
     Route: 065
     Dates: start: 20141127
  43. RESONIUM [Concomitant]
     Active Substance: SODIUM POLYSTYRENE SULFONATE
     Indication: HYPERKALAEMIA
     Dosage: UNK
     Route: 065
     Dates: start: 20150513, end: 20150526
  44. CLOBEGALEN [Concomitant]
     Dosage: UNK UNK, QD (1 TO 2 TIMES PER DAY)
     Route: 065
     Dates: start: 20150903

REACTIONS (11)
  - Thrombocytopenia [Recovered/Resolved]
  - Thrombocytopenia [Not Recovered/Not Resolved]
  - Leukopenia [Not Recovered/Not Resolved]
  - Thrombocytopenia [Recovered/Resolved]
  - Thrombocytopenia [Recovered/Resolved]
  - Anaemia [Recovered/Resolved]
  - Rectal haemorrhage [Recovered/Resolved]
  - Iron overload [Not Recovered/Not Resolved]
  - Anaemia [Recovered/Resolved]
  - Anaemia [Recovered/Resolved]
  - Dyspnoea exertional [Not Recovered/Not Resolved]

NARRATIVE: CASE EVENT DATE: 20121018
